FAERS Safety Report 8312860-2 (Version None)
Quarter: 2012Q2

REPORT INFORMATION
  Report Type: 
  Country: None (occurrence: None)
  Receive Date: 20120426
  Receipt Date: 20120423
  Transmission Date: 20120825
  Serious: No
  Sender: FDA-Public Use
  Company Number: US-PFIZER INC-2011089062

PATIENT
  Sex: Female
  Weight: 63.492 kg

DRUGS (9)
  1. PRISTIQ [Interacting]
     Indication: MAJOR DEPRESSION
     Dosage: 50 MG, 1X/DAY
     Route: 048
     Dates: start: 20100501
  2. RESTORIL [Suspect]
     Indication: SLEEP DISORDER
     Dosage: UNK
  3. VALIUM [Concomitant]
     Indication: TREMOR
     Dosage: 10 MG, 3X/DAY
  4. PRISTIQ [Interacting]
     Indication: DEPRESSION
     Dosage: UNK
  5. ZOLOFT [Suspect]
     Indication: DEPRESSION
     Dosage: UNK
     Route: 048
  6. LEXAPRO [Suspect]
     Indication: DEPRESSION
     Dosage: UNK
  7. TRAZODONE [Concomitant]
     Dosage: 50 MG, HS (AT BEDTIME)
  8. XANAX [Concomitant]
     Indication: ANXIETY
     Dosage: UNK
  9. PRILOSEC [Concomitant]
     Indication: GASTROOESOPHAGEAL REFLUX DISEASE
     Dosage: 20 (UNITS UNSPECIFIED), QD

REACTIONS (12)
  - MALAISE [None]
  - ENERGY INCREASED [None]
  - ABDOMINAL PAIN UPPER [None]
  - FLATULENCE [None]
  - ANXIETY [None]
  - DRUG INEFFECTIVE [None]
  - GASTROOESOPHAGEAL REFLUX DISEASE [None]
  - INSOMNIA [None]
  - FATIGUE [None]
  - CHOKING SENSATION [None]
  - SOMNOLENCE [None]
  - DRUG INTERACTION [None]
